FAERS Safety Report 7422560-9 (Version None)
Quarter: 2011Q2

REPORT INFORMATION
  Report Type: 
  Country: None (occurrence: None)
  Receive Date: 20110419
  Receipt Date: 20110407
  Transmission Date: 20111010
  Serious: Yes (Other)
  Sender: FDA-Public Use
  Company Number: US-CEPHALON-2010004030

PATIENT
  Age: 58 Year
  Sex: Male

DRUGS (2)
  1. PROVIGIL [Suspect]
     Route: 048
     Dates: start: 20070101
  2. NUVIGIL [Suspect]
     Route: 048
     Dates: start: 20100101

REACTIONS (1)
  - HAEMOPTYSIS [None]
